FAERS Safety Report 10207487 (Version 1)
Quarter: 2014Q2

REPORT INFORMATION
  Report Type: Spontaneous
  Country: US (occurrence: US)
  Receive Date: 20140530
  Receipt Date: 20140530
  Transmission Date: 20141212
  Serious: No
  Sender: FDA-Public Use
  Company Number: US-GLAXOSMITHKLINE-A1045233A

PATIENT
  Sex: Female

DRUGS (1)
  1. VENTOLIN [Suspect]

REACTIONS (1)
  - Asthma [Unknown]
